FAERS Safety Report 11646256 (Version 1)
Quarter: 2015Q4

REPORT INFORMATION
  Report Type: Spontaneous
  Country: US (occurrence: US)
  Receive Date: 20151020
  Receipt Date: 20151020
  Transmission Date: 20160304
  Serious: No
  Sender: FDA-Public Use
  Company Number: US-ROCHE-ITM201505IM016069

PATIENT
  Age: 75 Year
  Sex: Female
  Weight: 68.1 kg

DRUGS (3)
  1. COUMADIN [Concomitant]
     Active Substance: WARFARIN SODIUM
  2. ESBRIET [Suspect]
     Active Substance: PIRFENIDONE
     Indication: IDIOPATHIC PULMONARY FIBROSIS
     Dosage: 2403 MG TOTAL TAKE 3 CAPSULES OF 267 MG BY MOUTH THREE TIME
     Route: 048
     Dates: start: 201501
  3. ESBRIET [Suspect]
     Active Substance: PIRFENIDONE
     Dosage: 2403 MG TOTAL TAKE 3 CAPSULES OF 267 MG BY MOUTH THREE TIME
     Route: 048
     Dates: start: 20150219

REACTIONS (3)
  - Muscle spasms [Unknown]
  - Back pain [Unknown]
  - Abdominal discomfort [Unknown]

NARRATIVE: CASE EVENT DATE: 201505
